FAERS Safety Report 25989008 (Version 2)
Quarter: 2025Q4

REPORT INFORMATION
  Report Type: Spontaneous
  Country: EU (occurrence: EU)
  Receive Date: 20251103
  Receipt Date: 20251231
  Transmission Date: 20260117
  Serious: Yes (Hospitalization)
  Sender: JOHNSON AND JOHNSON
  Company Number: EU-JNJFOC-20251027768

PATIENT
  Age: 40 Year
  Sex: Female

DRUGS (4)
  1. GUSELKUMAB [Suspect]
     Active Substance: GUSELKUMAB
     Indication: Psoriasis
     Dates: start: 20190425, end: 20251023
  2. GUSELKUMAB [Suspect]
     Active Substance: GUSELKUMAB
  3. GUSELKUMAB [Suspect]
     Active Substance: GUSELKUMAB
  4. GUSELKUMAB [Suspect]
     Active Substance: GUSELKUMAB

REACTIONS (1)
  - Hepatic mass [Unknown]
